FAERS Safety Report 4444477-4 (Version None)
Quarter: 2004Q3

REPORT INFORMATION
  Report Type: 
  Country: None (occurrence: None)
  Receive Date: 20040902
  Receipt Date: 20040820
  Transmission Date: 20050211
  Serious: Yes (Other)
  Sender: FDA-Public Use
  Company Number: 2004058581

PATIENT
  Sex: Female
  Weight: 74.8435 kg

DRUGS (2)
  1. ZOLOFT [Suspect]
     Indication: DEPRESSION
     Dosage: 50 MG (50 MG, 1 IN 1 D), ORAL; 3 YEARS AGO
     Route: 048
  2. VITAMINS (VITAMINS) [Concomitant]

REACTIONS (7)
  - DIZZINESS POSTURAL [None]
  - FALL [None]
  - ISCHAEMIA [None]
  - LACERATION [None]
  - LIMB INJURY [None]
  - TRANSIENT ISCHAEMIC ATTACK [None]
  - VERTIGO [None]
